FAERS Safety Report 10486477 (Version 1)
Quarter: 2014Q3

REPORT INFORMATION
  Report Type: Spontaneous
  Country: US (occurrence: None)
  Receive Date: 20140930
  Receipt Date: 20140930
  Transmission Date: 20150326
  Serious: Yes (Other)
  Sender: FDA-Public Use
  Company Number: None

PATIENT
  Age: 59 Year
  Sex: Female

DRUGS (1)
  1. CYMBALTA [Suspect]
     Active Substance: DULOXETINE HYDROCHLORIDE
     Indication: ARTHRALGIA
     Route: 048

REACTIONS (6)
  - Headache [None]
  - Drug withdrawal syndrome [None]
  - Nausea [None]
  - Feeling abnormal [None]
  - Mood swings [None]
  - Hyperhidrosis [None]

NARRATIVE: CASE EVENT DATE: 20140915
